FAERS Safety Report 13428221 (Version 9)
Quarter: 2018Q4

REPORT INFORMATION
  Report Type: Spontaneous
  Country: US (occurrence: US)
  Receive Date: 20170411
  Receipt Date: 20181114
  Transmission Date: 20190204
  Serious: Yes (Hospitalization)
  Sender: FDA-Public Use
  Company Number: US-ACTELION-A-US2017-152318

PATIENT
  Age: 27 Year
  Sex: Female
  Weight: 52.15 kg

DRUGS (13)
  1. LETAIRIS [Suspect]
     Active Substance: AMBRISENTAN
     Indication: PULMONARY HYPERTENSION
     Dosage: 10 MG, QD
     Route: 048
  2. POTASSIUM CHLORIDE. [Concomitant]
     Active Substance: POTASSIUM CHLORIDE
  3. AMLODIPINE [Concomitant]
     Active Substance: AMLODIPINE BESYLATE
  4. DIGOXIN. [Concomitant]
     Active Substance: DIGOXIN
  5. CHOLECALCIFEROL [Concomitant]
     Active Substance: CHOLECALCIFEROL
  6. SPIRONOLACTONE. [Concomitant]
     Active Substance: SPIRONOLACTONE
  7. METHIMAZOLE. [Concomitant]
     Active Substance: METHIMAZOLE
  8. VELETRI [Suspect]
     Active Substance: EPOPROSTENOL
     Indication: PULMONARY ARTERIAL HYPERTENSION
     Dosage: 30 NG/KG, PER MIN
     Route: 042
  9. ADCIRCA [Concomitant]
     Active Substance: TADALAFIL
     Indication: PULMONARY ARTERIAL HYPERTENSION
  10. WARFARIN [Concomitant]
     Active Substance: WARFARIN
  11. ENOXAPARIN [Concomitant]
     Active Substance: ENOXAPARIN
  12. TORASEMIDE [Concomitant]
     Active Substance: TORSEMIDE
  13. REMODULIN [Suspect]
     Active Substance: TREPROSTINIL
     Indication: PULMONARY ARTERIAL HYPERTENSION
     Dosage: 30 NG/KG, PER MIN
     Route: 065
     Dates: start: 20181029

REACTIONS (7)
  - Vascular device infection [Unknown]
  - Cellulitis [Recovered/Resolved]
  - Device related infection [Unknown]
  - Central venous catheterisation [Unknown]
  - Injection site pain [Unknown]
  - Therapy change [Unknown]
  - Catheter management [Recovered/Resolved]

NARRATIVE: CASE EVENT DATE: 20170405
